FAERS Safety Report 17167963 (Version 1)
Quarter: 2019Q4

REPORT INFORMATION
  Report Type: Spontaneous
  Country: US (occurrence: US)
  Receive Date: 20191218
  Receipt Date: 20191218
  Transmission Date: 20200122
  Serious: No
  Sender: FDA-Public Use
  Company Number: US-ALK-ABELLO A/S-2019AA004233

PATIENT

DRUGS (4)
  1. ODACTRA [Suspect]
     Active Substance: DERMATOPHAGOIDES FARINAE\DERMATOPHAGOIDES PTERONYSSINUS
     Dosage: UNK
     Dates: start: 2019, end: 20191201
  2. XANAX [Concomitant]
     Active Substance: ALPRAZOLAM
  3. FLUTICASONE. [Concomitant]
     Active Substance: FLUTICASONE
     Route: 045
  4. ODACTRA [Suspect]
     Active Substance: DERMATOPHAGOIDES FARINAE\DERMATOPHAGOIDES PTERONYSSINUS
     Indication: PRODUCT USED FOR UNKNOWN INDICATION
     Dosage: UNK
     Route: 060
     Dates: start: 20191119, end: 20191201

REACTIONS (2)
  - Heart rate increased [Recovered/Resolved]
  - Palpitations [Recovered/Resolved]
